FAERS Safety Report 17954136 (Version 1)
Quarter: 2020Q2

REPORT INFORMATION
  Report Type: Spontaneous
  Country: US (occurrence: US)
  Receive Date: 20200629
  Receipt Date: 20200629
  Transmission Date: 20200714
  Serious: No
  Sender: FDA-Public Use
  Company Number: US-JNJFOC-20200629524

PATIENT

DRUGS (1)
  1. PEPCID AC MAXIMUM STRENGTH [Suspect]
     Active Substance: FAMOTIDINE
     Indication: DYSPEPSIA
     Dosage: 1 TABLET 2 DAILY AND SOME TIMES 3 TIMES?LAST ADMIN DATE: 19-JUN-2020
     Route: 048
     Dates: start: 2018

REACTIONS (1)
  - Overdose [Unknown]
